FAERS Safety Report 4709790-1 (Version None)
Quarter: 2005Q3

REPORT INFORMATION
  Report Type: 
  Country: None (occurrence: None)
  Receive Date: 20050708
  Receipt Date: 20050627
  Transmission Date: 20060218
  Serious: Yes (Death, Hospitalization)
  Sender: FDA-Public Use
  Company Number: JP-JNJFOC-20041201273

PATIENT
  Age: 64 Year
  Sex: Female

DRUGS (18)
  1. DUROTEP [Suspect]
     Route: 062
  2. DUROTEP [Suspect]
     Route: 062
  3. DUROTEP [Suspect]
     Route: 062
  4. DUROTEP [Suspect]
     Route: 062
  5. DUROTEP [Suspect]
     Dosage: THREE 2.5 MG PATCHES
     Route: 062
  6. DUROTEP [Suspect]
     Route: 062
  7. DUROTEP [Suspect]
     Route: 062
  8. DUROTEP [Suspect]
     Dosage: ONE HALF PATCH AREA WAS APPLIED
     Route: 062
  9. DUROTEP [Suspect]
     Indication: CANCER PAIN
     Route: 062
  10. INCADRONATE DISODIUM [Concomitant]
     Indication: HYPERCALCAEMIA
  11. STEROID [Concomitant]
     Route: 049
  12. MELOXICAM [Concomitant]
     Indication: CANCER PAIN
     Route: 049
  13. MAINTENANCE MEDIUM [Concomitant]
  14. MAINTENANCE MEDIUM [Concomitant]
  15. MAINTENANCE MEDIUM [Concomitant]
     Indication: DEHYDRATION
  16. RABEPRAZOLE SODIUM [Concomitant]
     Indication: STOMACH DISCOMFORT
     Route: 049
  17. BROTIZOLAM [Concomitant]
     Route: 049
  18. MINOCYCLINE HYDROCHLORIDE [Concomitant]
     Route: 049

REACTIONS (14)
  - ASCITES [None]
  - DEHYDRATION [None]
  - DELIRIUM [None]
  - DISSEMINATED INTRAVASCULAR COAGULATION [None]
  - DRUG TOXICITY [None]
  - FAECAL INCONTINENCE [None]
  - HYPOTENSION [None]
  - MALIGNANT NEOPLASM PROGRESSION [None]
  - OEDEMA PERIPHERAL [None]
  - PAIN [None]
  - SOMNOLENCE [None]
  - STAPHYLOCOCCAL INFECTION [None]
  - TUMOUR ASSOCIATED FEVER [None]
  - URETERIC CANCER [None]
